FAERS Safety Report 8962129 (Version 1)
Quarter: 2012Q4

REPORT INFORMATION
  Report Type: 
  Country: US (occurrence: US)
  Receive Date: 20121212
  Receipt Date: 20121212
  Transmission Date: 20130627
  Serious: No
  Sender: FDA-Public Use
  Company Number: US-009507513-1212USA002996

PATIENT
  Age: 48 Year
  Sex: Female
  Weight: 56.24 kg

DRUGS (5)
  1. PEG-INTRON [Suspect]
     Indication: HEPATITIS C
     Dosage: 120 Microgram/0.5 ML, qw(4SYR/PK)
     Route: 058
  2. RIBAVIRIN [Suspect]
     Indication: HEPATITIS C
  3. SYNTHYROID [Concomitant]
  4. CALCIUM (UNSPECIFIED) [Concomitant]
     Dosage: 500 (unspecified)
  5. VITAMIN D (UNSPECIFIED) [Concomitant]
     Dosage: 1000 unit

REACTIONS (3)
  - Pyrexia [Unknown]
  - Headache [Unknown]
  - Neutropenia [Unknown]
